FAERS Safety Report 4356138-0 (Version None)
Quarter: 2004Q2

REPORT INFORMATION
  Report Type: 
  Country: None (occurrence: None)
  Receive Date: 20040511
  Receipt Date: 20040430
  Transmission Date: 20050107
  Serious: Yes (Hospitalization)
  Sender: FDA-Public Use
  Company Number: PHHO2004CA06341

PATIENT
  Age: 51 Year
  Sex: Female

DRUGS (4)
  1. CLOZARIL [Suspect]
     Indication: SCHIZOPHRENIA
     Dosage: 750 MG / DAY
     Route: 048
     Dates: start: 19930831, end: 20040419
  2. CLOZARIL [Suspect]
     Dosage: UNK, NO TREATMENT
     Route: 048
     Dates: start: 20040420, end: 20040422
  3. CLOZARIL [Suspect]
     Dosage: DOSE UNKNOWN
     Dates: start: 20040401
  4. RISPERIDONE [Concomitant]

REACTIONS (5)
  - CONFUSIONAL STATE [None]
  - DRUG TOXICITY [None]
  - DYSARTHRIA [None]
  - FEELING ABNORMAL [None]
  - GRAND MAL CONVULSION [None]
